FAERS Safety Report 8218956-8 (Version None)
Quarter: 2012Q1

REPORT INFORMATION
  Report Type: 
  Country: None (occurrence: None)
  Receive Date: 20120319
  Receipt Date: 20120309
  Transmission Date: 20120608
  Serious: Yes (Other)
  Sender: FDA-Public Use
  Company Number: US-MERCK-1203USA01315

PATIENT
  Age: 55 Year
  Sex: Female

DRUGS (12)
  1. KLOR-CON [Concomitant]
     Route: 065
  2. HYDROCHLOROTHIAZIDE [Concomitant]
     Route: 065
  3. WELLBUTRIN [Concomitant]
     Route: 065
  4. KLONOPIN [Concomitant]
     Route: 065
  5. ZETIA [Suspect]
     Indication: LOW DENSITY LIPOPROTEIN DECREASED
     Route: 048
     Dates: start: 20120101, end: 20120308
  6. ATENOLOL [Concomitant]
     Route: 065
  7. ASPIRIN [Concomitant]
     Route: 065
  8. VITAMIN D (UNSPECIFIED) [Concomitant]
     Route: 065
  9. OMEGA-3 MARINE TRIGLYCERIDES [Concomitant]
     Route: 065
  10. TOPAMAX [Concomitant]
     Route: 065
  11. PLAVIX [Concomitant]
     Route: 065
  12. VALIUM [Concomitant]
     Route: 065

REACTIONS (8)
  - SUICIDE ATTEMPT [None]
  - SCREAMING [None]
  - ADVERSE EVENT [None]
  - OVERDOSE [None]
  - DEPRESSION [None]
  - SPEECH DISORDER [None]
  - DYSPHONIA [None]
  - MALAISE [None]
